FAERS Safety Report 8988439 (Version 1)
Quarter: 2012Q4

REPORT INFORMATION
  Report Type: Spontaneous
  Country: US (occurrence: None)
  Receive Date: 20121221
  Receipt Date: 20121221
  Transmission Date: 20130627
  Serious: Yes (Hospitalization)
  Sender: FDA-Public Use
  Company Number: None

PATIENT
  Age: 86 Year
  Sex: Male
  Weight: 70.2 kg

DRUGS (1)
  1. ONDANSETRON [Suspect]
     Dosage: 4 MG  PRN  SQ
     Route: 058
     Dates: start: 20121113, end: 20121114

REACTIONS (2)
  - Sedation [None]
  - Lethargy [None]
